FAERS Safety Report 7966011-4 (Version None)
Quarter: 2011Q4

REPORT INFORMATION
  Report Type: 
  Country: None (occurrence: None)
  Receive Date: 20111208
  Receipt Date: 20111206
  Transmission Date: 20120403
  Serious: Yes (Death, Other)
  Sender: FDA-Public Use
  Company Number: DE-B.I. PHARMACEUTICALS,INC./RIDGEFIELD-2011-DE-05952DE

PATIENT
  Sex: Female
  Weight: 193 kg

DRUGS (10)
  1. PRADAXA [Suspect]
     Indication: ATRIAL FIBRILLATION
     Dosage: 300 MG
     Route: 048
     Dates: start: 20110928, end: 20111017
  2. HYDROCHLOROTHIAZID [Concomitant]
  3. RAMIPRIL [Concomitant]
  4. CITALOPRAM [Concomitant]
     Dosage: 2 ANZ
  5. HUMALOG [Concomitant]
     Route: 058
  6. DIGITOXIN TAB [Concomitant]
     Indication: ATRIAL FIBRILLATION
     Dosage: 0.1 MG
     Route: 048
  7. FERROUS SULFATE TAB [Concomitant]
  8. BISOPROLOL FUMARATE [Concomitant]
     Indication: ATRIAL FIBRILLATION
     Dosage: 10 MG
     Route: 048
  9. TORSEMIDE [Concomitant]
     Indication: CARDIAC FAILURE
     Dosage: 50 MG
     Route: 048
  10. ALLOPURINOL [Concomitant]
     Dosage: 100 MG

REACTIONS (7)
  - MULTI-ORGAN FAILURE [None]
  - VAGINAL HAEMORRHAGE [None]
  - HAEMORRHAGE [None]
  - RENAL IMPAIRMENT [None]
  - OVERDOSE [None]
  - SEPSIS [None]
  - UTERINE HAEMORRHAGE [None]
